FAERS Safety Report 15296800 (Version 2)
Quarter: 2018Q4

REPORT INFORMATION
  Report Type: Report from Study
  Country: BR (occurrence: BR)
  Receive Date: 20180820
  Receipt Date: 20181129
  Transmission Date: 20190204
  Serious: Yes (Other)
  Sender: FDA-Public Use
  Company Number: BR-JNJFOC-20180819632

PATIENT
  Sex: Female
  Weight: 69 kg

DRUGS (2)
  1. SIMPONI [Suspect]
     Active Substance: GOLIMUMAB
     Indication: RHEUMATOID ARTHRITIS
     Route: 058
     Dates: start: 20161228, end: 201806
  2. LOSARTAN. [Concomitant]
     Active Substance: LOSARTAN

REACTIONS (3)
  - Tuberculosis [Not Recovered/Not Resolved]
  - Pneumonia [Unknown]
  - Rheumatoid arthritis [Unknown]

NARRATIVE: CASE EVENT DATE: 2018
